FAERS Safety Report 8816375 (Version 1)
Quarter: 2012Q4

REPORT INFORMATION
  Report Type: Spontaneous
  Country: US (occurrence: None)
  Receive Date: 20120928
  Receipt Date: 20120928
  Transmission Date: 20130627
  Serious: Yes (Life-Threatening)
  Sender: FDA-Public Use
  Company Number: None

PATIENT
  Sex: Female
  Weight: 52.16 kg

DRUGS (1)
  1. VISTARIL [Suspect]
     Indication: ANXIETY
     Dates: start: 20120915

REACTIONS (10)
  - Sedation [None]
  - Hypersomnia [None]
  - Dysphagia [None]
  - Nightmare [None]
  - Middle insomnia [None]
  - Screaming [None]
  - Amnesia [None]
  - Feeling abnormal [None]
  - Fear of death [None]
  - Panic reaction [None]
